FAERS Safety Report 9683469 (Version 2)
Quarter: 2014Q1

REPORT INFORMATION
  Report Type: Spontaneous
  Country: FR (occurrence: FR)
  Receive Date: 20131112
  Receipt Date: 20140109
  Transmission Date: 20141002
  Serious: Yes (Other)
  Sender: FDA-Public Use
  Company Number: FR-ROCHE-1299714

PATIENT
  Age: 16 Month
  Sex: Male
  Weight: 8.6 kg

DRUGS (1)
  1. CYMEVAN [Suspect]
     Indication: CYTOMEGALOVIRUS INFECTION
     Route: 042
     Dates: start: 20131008

REACTIONS (3)
  - Hepatocellular injury [Recovered/Resolved]
  - Incorrect dose administered [Unknown]
  - Accidental overdose [Unknown]
